FAERS Safety Report 9820392 (Version 2)
Quarter: 2014Q1

REPORT INFORMATION
  Report Type: Spontaneous
  Country: US (occurrence: None)
  Receive Date: 20140114
  Receipt Date: 20140205
  Transmission Date: 20141002
  Serious: Yes (Other)
  Sender: FDA-Public Use
  Company Number: 2014SA002950

PATIENT
  Age: 48 Year
  Sex: Male
  Weight: 170 kg

DRUGS (1)
  1. GOLD BOND EXTRA STRENGTH MEDICATED BODY POWDER [Suspect]
     Indication: RASH

REACTIONS (5)
  - Application site burn [None]
  - Skin discolouration [None]
  - Pain [None]
  - Impaired work ability [None]
  - Application site pain [None]
